FAERS Safety Report 7439949-4 (Version None)
Quarter: 2011Q2

REPORT INFORMATION
  Report Type: 
  Country: None (occurrence: None)
  Receive Date: 20110427
  Receipt Date: 20090619
  Transmission Date: 20111010
  Serious: Yes (Death, Hospitalization, Other)
  Sender: FDA-Public Use
  Company Number: US-BAYER-200924122NA

PATIENT
  Age: 7 Year
  Sex: Female
  Weight: 20 kg

DRUGS (21)
  1. TRASYLOL [Suspect]
     Indication: AORTIC SURGERY
  2. HEPARIN [Concomitant]
     Dosage: UNK
     Dates: start: 20060926, end: 20060926
  3. TRASYLOL [Suspect]
     Indication: VENTRICULAR SEPTAL DEFECT REPAIR
  4. MILRINONE [Concomitant]
  5. EPINEPHRINE [Concomitant]
  6. LASIX [Concomitant]
  7. TRASYLOL [Suspect]
     Indication: ATRIAL SWITCH OPERATION
     Dosage: 1 ML, ONCE
     Route: 042
     Dates: start: 20060926
  8. PLATELETS [Concomitant]
     Dosage: UNK, X2
     Dates: start: 20060926
  9. DIURIL [Concomitant]
  10. MANNITOL [Concomitant]
     Dosage: UNK
     Dates: start: 20060926, end: 20060926
  11. ASPIRIN [Concomitant]
     Dosage: 81 MG, UNK
     Route: 048
     Dates: end: 20060914
  12. NEO-SYNEPHRINOL [Concomitant]
     Dosage: UNK
     Route: 042
     Dates: start: 20060926, end: 20060926
  13. EPINEPHRINE [Concomitant]
     Dosage: UNK
     Route: 042
     Dates: start: 20060926, end: 20060926
  14. VERSED [Concomitant]
     Dosage: UNK
     Route: 042
     Dates: start: 20060926, end: 20060926
  15. ALBUMIN (HUMAN) [Concomitant]
     Dosage: UNK
     Dates: start: 20060926, end: 20060926
  16. TRASYLOL [Suspect]
     Indication: STENT PLACEMENT
     Dosage: 36.8 ML, Q1HR
     Route: 042
     Dates: start: 20060926, end: 20060926
  17. FRESH FROZEN PLASMA [Concomitant]
     Dosage: 240 ML, UNK
     Dates: start: 20060926
  18. MILRINONE [Concomitant]
     Dosage: UNK
     Route: 042
     Dates: start: 20060926, end: 20060926
  19. VASOPRESSIN [Concomitant]
  20. TRASYLOL [Suspect]
     Indication: CARDIAC PACEMAKER INSERTION
  21. CRYOPRECIPITATES [Concomitant]
     Dosage: 450 ML, X2
     Dates: start: 20060926

REACTIONS (14)
  - SEPSIS [None]
  - RENAL IMPAIRMENT [None]
  - INJURY [None]
  - RENAL INJURY [None]
  - STRESS [None]
  - ANXIETY [None]
  - FEAR [None]
  - DEATH [None]
  - MULTI-ORGAN FAILURE [None]
  - UNEVALUABLE EVENT [None]
  - PAIN [None]
  - ANHEDONIA [None]
  - RENAL FAILURE [None]
  - EMOTIONAL DISTRESS [None]
